FAERS Safety Report 4276988-9 (Version None)
Quarter: 2004Q1

REPORT INFORMATION
  Report Type: 
  Country: None (occurrence: None)
  Receive Date: 20040109
  Receipt Date: 20031230
  Transmission Date: 20041129
  Serious: Yes (Other)
  Sender: FDA-Public Use
  Company Number: 12452959

PATIENT
  Sex: Male

DRUGS (1)
  1. METHOTREXATE [Suspect]
     Indication: SARCOIDOSIS
     Dosage: 1 DOSAGE FORM, 1 WEEK, ORAL
     Route: 048
     Dates: start: 19950201

REACTIONS (7)
  - BLOOD CREATININE ABNORMAL [None]
  - GRANULOCYTES ABNORMAL [None]
  - HAEMOGLOBIN DECREASED [None]
  - LABORATORY TEST ABNORMAL [None]
  - PLATELET COUNT ABNORMAL [None]
  - WHIPPLE'S DISEASE [None]
  - WHITE BLOOD CELL DISORDER [None]
